FAERS Safety Report 9162497 (Version 2)
Quarter: 2013Q2

REPORT INFORMATION
  Report Type: Spontaneous
  Country: US (occurrence: US)
  Receive Date: 20130314
  Receipt Date: 20130409
  Transmission Date: 20140414
  Serious: Yes (Other)
  Sender: FDA-Public Use
  Company Number: US-MERCK-1303USA002632

PATIENT
  Age: 27 Year
  Sex: Male

DRUGS (1)
  1. INTRONA [Suspect]
     Indication: MALIGNANT MELANOMA
     Dosage: UNK
     Dates: start: 201210

REACTIONS (2)
  - Malignant melanoma stage IV [Not Recovered/Not Resolved]
  - Metastases to central nervous system [Unknown]
